FAERS Safety Report 5992381-2 (Version None)
Quarter: 2008Q4

REPORT INFORMATION
  Report Type: 
  Country: None (occurrence: None)
  Receive Date: 20081202
  Receipt Date: 20080108
  Transmission Date: 20090506
  Serious: Yes (Other)
  Sender: FDA-Public Use
  Company Number: WAES 0705USA02799

PATIENT
  Age: 65 Year
  Sex: Female
  Weight: 71.6683 kg

DRUGS (9)
  1. FOSAMAX [Suspect]
     Indication: OSTEOPENIA
     Dosage: 10 MG/DAILY/PO
     Route: 048
     Dates: start: 20010801
  2. ASPIRIN [Concomitant]
  3. LOPID [Concomitant]
  4. MEVACOR [Concomitant]
  5. NITROGLYCERIN [Concomitant]
  6. PRINIVIL [Concomitant]
  7. ZESTRIL [Concomitant]
  8. MECLIZINE [Concomitant]
  9. THERAPY UNSPECIFIED [Concomitant]

REACTIONS (13)
  - ABSCESS ORAL [None]
  - ANXIETY [None]
  - DENTAL CARIES [None]
  - DRUG HYPERSENSITIVITY [None]
  - EDENTULOUS [None]
  - GINGIVAL DISORDER [None]
  - ORAL INFECTION [None]
  - OSTEONECROSIS [None]
  - OSTEOPOROSIS [None]
  - RESORPTION BONE INCREASED [None]
  - RHINITIS ALLERGIC [None]
  - TOOTH DISORDER [None]
  - TYPE 2 DIABETES MELLITUS [None]
